FAERS Safety Report 19165131 (Version 1)
Quarter: 2021Q2

REPORT INFORMATION
  Report Type: Spontaneous
  Country: US (occurrence: US)
  Receive Date: 20210421
  Receipt Date: 20210421
  Transmission Date: 20210717
  Serious: Yes (Hospitalization)
  Sender: FDA-Public Use
  Company Number: US-MYLANLABS-2021M1023314

PATIENT
  Age: 85 Year
  Sex: Male

DRUGS (5)
  1. HYDRALAZINE [Suspect]
     Active Substance: HYDRALAZINE HYDROCHLORIDE
     Indication: HYPERTENSIVE CRISIS
     Route: 042
  2. NICARDIPINE [Suspect]
     Active Substance: NICARDIPINE
     Indication: HYPERTENSIVE CRISIS
     Route: 042
  3. TERAZOSIN [Suspect]
     Active Substance: TERAZOSIN HYDROCHLORIDE
     Indication: HYPERTENSION
     Route: 065
  4. GLYCERYL TRINITRATE [Suspect]
     Active Substance: NITROGLYCERIN
     Indication: HYPERTENSIVE CRISIS
  5. METOPROLOL. [Suspect]
     Active Substance: METOPROLOL
     Indication: HYPERTENSIVE CRISIS
     Route: 042

REACTIONS (1)
  - Drug ineffective [Unknown]
